FAERS Safety Report 13643657 (Version 1)
Quarter: 2017Q2

REPORT INFORMATION
  Report Type: Spontaneous
  Country: GB (occurrence: GB)
  Receive Date: 20170612
  Receipt Date: 20170612
  Transmission Date: 20170830
  Serious: Yes (Other)
  Sender: FDA-Public Use
  Company Number: GB-BRACCO-001220

PATIENT
  Age: 50 Year
  Sex: Female
  Weight: 116.57 kg

DRUGS (3)
  1. NEOCLARITYN [Concomitant]
     Active Substance: DESLORATADINE
  2. GLUCOSAMINE HYDROCHLORIDE [Concomitant]
     Active Substance: GLUCOSAMINE HYDROCHLORIDE
  3. PROHANCE [Suspect]
     Active Substance: GADOTERIDOL
     Indication: NUCLEAR MAGNETIC RESONANCE IMAGING
     Route: 051
     Dates: start: 20170519, end: 20170519

REACTIONS (3)
  - Dry mouth [Recovered/Resolved]
  - Dysgeusia [Recovering/Resolving]
  - Decreased appetite [Not Recovered/Not Resolved]

NARRATIVE: CASE EVENT DATE: 20170519
